FAERS Safety Report 18444738 (Version 14)
Quarter: 2022Q3

REPORT INFORMATION
  Report Type: Report from Study
  Country: US (occurrence: US)
  Receive Date: 20201030
  Receipt Date: 20220802
  Transmission Date: 20221026
  Serious: Yes (Other)
  Sender: FDA-Public Use
  Company Number: US-SHIRE-US202017087

PATIENT
  Age: 63 Year
  Sex: Female

DRUGS (5)
  1. HUMAN IMMUNOGLOBULIN G [Suspect]
     Active Substance: HUMAN IMMUNOGLOBULIN G
     Indication: Primary immunodeficiency syndrome
     Dosage: UNK
     Route: 042
  2. HUMAN IMMUNOGLOBULIN G [Suspect]
     Active Substance: HUMAN IMMUNOGLOBULIN G
     Dosage: UNK UNK, Q3WEEKS
     Route: 042
  3. HUMAN IMMUNOGLOBULIN G [Suspect]
     Active Substance: HUMAN IMMUNOGLOBULIN G
     Dosage: UNK
     Route: 058
  4. PANZYGA [Suspect]
     Active Substance: HUMAN IMMUNOGLOBULIN G
     Indication: Primary immunodeficiency syndrome
     Dosage: UNK
     Route: 065
  5. OZEMPIC [Concomitant]
     Active Substance: SEMAGLUTIDE
     Route: 065

REACTIONS (22)
  - Diverticulitis [Unknown]
  - Bronchitis [Unknown]
  - Weight decreased [Unknown]
  - Feeling abnormal [Unknown]
  - Illness [Unknown]
  - Nonspecific reaction [Unknown]
  - Asthma [Unknown]
  - Sinusitis [Unknown]
  - COVID-19 [Recovering/Resolving]
  - Fall [Recovered/Resolved]
  - Diarrhoea [Recovered/Resolved]
  - Migraine [Unknown]
  - Rash pruritic [Recovered/Resolved]
  - Pain [Unknown]
  - Headache [Unknown]
  - Cough [Unknown]
  - Fatigue [Unknown]
  - Herpes zoster [Unknown]
  - Catheterisation cardiac [Unknown]
  - Constipation [Unknown]
  - Malaise [Unknown]
  - Abdominal discomfort [Unknown]

NARRATIVE: CASE EVENT DATE: 20210801
